FAERS Safety Report 10254609 (Version 1)
Quarter: 2014Q2

REPORT INFORMATION
  Report Type: Spontaneous
  Country: US (occurrence: None)
  Receive Date: 20140620
  Receipt Date: 20140620
  Transmission Date: 20141212
  Serious: Yes (Other)
  Sender: FDA-Public Use
  Company Number: None

PATIENT
  Age: 23 Year
  Sex: Female
  Weight: 55.34 kg

DRUGS (1)
  1. XULANE [Suspect]
     Indication: CONTRACEPTION
     Dosage: 1 PATCH/WK?
     Dates: end: 201406

REACTIONS (1)
  - Metrorrhagia [None]
